FAERS Safety Report 10007068 (Version 1)
Quarter: 2014Q1

REPORT INFORMATION
  Report Type: Spontaneous
  Country: GB (occurrence: None)
  Receive Date: 20140311
  Receipt Date: 20140311
  Transmission Date: 20141002
  Serious: Yes (Hospitalization, Disabling)
  Sender: FDA-Public Use
  Company Number: 2014GB003059

PATIENT
  Age: 74 Year
  Sex: Female

DRUGS (14)
  1. ICLUSIG [Suspect]
     Indication: CHRONIC MYELOID LEUKAEMIA
     Route: 048
     Dates: start: 2012, end: 2013
  2. BISOPROLOL (BISOPROLOL) [Concomitant]
  3. CITALOPRAM (CITALOPRAM) [Concomitant]
  4. DIGOXIN (DIGOXIN) [Concomitant]
  5. DOCUSATE (DOCUSATE) [Concomitant]
  6. EZETIMIBE (EZETIMIBE) [Concomitant]
  7. LANSOPRAZOL (LANSOPRAZOL [Concomitant]
  8. LERCANIDIPINE (LERCANIDIPINE) [Concomitant]
  9. METFORMIN (METFORMIN) [Concomitant]
  10. PARACETAMOL (PARACETAMOL) [Concomitant]
  11. PRAVASTATIN (PRAVASTATIN) [Concomitant]
  12. PREDNISOLONE (PREDNISOLONE) [Concomitant]
  13. SENNA (SENNA) [Concomitant]
  14. WARFARIN (WARFARIN) [Concomitant]

REACTIONS (9)
  - Skin ulcer [None]
  - Skin necrosis [None]
  - Wound secretion [None]
  - Hyperaesthesia [None]
  - Erythema [None]
  - Discomfort [None]
  - Pain in extremity [None]
  - Biliary sepsis [None]
  - Delirium [None]
